FAERS Safety Report 21702019 (Version 2)
Quarter: 2022Q4

REPORT INFORMATION
  Report Type: Spontaneous
  Country: US (occurrence: US)
  Receive Date: 20221208
  Receipt Date: 20221219
  Transmission Date: 20230113
  Serious: Yes (Other)
  Sender: FDA-Public Use
  Company Number: US-DSPHARMA-2022SUN003374

PATIENT
  Age: 62 Year
  Sex: Female

DRUGS (2)
  1. LATUDA [Suspect]
     Active Substance: LURASIDONE HYDROCHLORIDE
     Dosage: 40 MG, QD
     Route: 048
  2. LATUDA [Suspect]
     Active Substance: LURASIDONE HYDROCHLORIDE
     Dosage: 60 MG (120 MG IN HALF)
     Route: 048

REACTIONS (5)
  - Breast cancer [Unknown]
  - Bipolar disorder [Unknown]
  - Suicidal ideation [Unknown]
  - Anxiety [Unknown]
  - Wrong technique in product usage process [Unknown]
